FAERS Safety Report 21284198 (Version 5)
Quarter: 2024Q4

REPORT INFORMATION
  Report Type: Report from Study
  Country: CO (occurrence: CO)
  Receive Date: 20220902
  Receipt Date: 20241218
  Transmission Date: 20250115
  Serious: Yes (Other)
  Sender: BIOGEN
  Company Number: CO-BIOGEN-2019BI00815671

PATIENT
  Age: 42 Year
  Sex: Female
  Weight: 70 kg

DRUGS (9)
  1. TYSABRI [Suspect]
     Active Substance: NATALIZUMAB
     Indication: Multiple sclerosis
     Route: 050
     Dates: start: 20191029
  2. TYSABRI [Suspect]
     Active Substance: NATALIZUMAB
     Route: 050
     Dates: start: 202204
  3. TYSABRI [Suspect]
     Active Substance: NATALIZUMAB
     Route: 050
     Dates: start: 20191030
  4. TYSABRI [Suspect]
     Active Substance: NATALIZUMAB
     Route: 050
     Dates: start: 20191029
  5. TYSABRI [Suspect]
     Active Substance: NATALIZUMAB
     Route: 050
     Dates: start: 202203
  6. TYSABRI [Suspect]
     Active Substance: NATALIZUMAB
     Route: 050
     Dates: start: 202211
  7. TYSABRI [Suspect]
     Active Substance: NATALIZUMAB
     Route: 050
     Dates: start: 2022
  8. TYSABRI [Suspect]
     Active Substance: NATALIZUMAB
     Dosage: 300 MG EVERY 45 DAYS
     Route: 050
     Dates: start: 2022
  9. ACETAMINOPHEN\TRAMADOL [Concomitant]
     Active Substance: ACETAMINOPHEN\TRAMADOL
     Indication: Multiple sclerosis
     Route: 050
     Dates: start: 202404

REACTIONS (19)
  - Aneurysm [Not Recovered/Not Resolved]
  - Urinary incontinence [Unknown]
  - Pain in extremity [Not Recovered/Not Resolved]
  - Limb discomfort [Not Recovered/Not Resolved]
  - Discouragement [Unknown]
  - Gait disturbance [Unknown]
  - Drug intolerance [Unknown]
  - Sacroiliitis [Unknown]
  - Adnexa uteri pain [Recovered/Resolved]
  - Hypoaesthesia [Unknown]
  - Malaise [Unknown]
  - Neurogenic bladder [Not Recovered/Not Resolved]
  - Muscular weakness [Not Recovered/Not Resolved]
  - Influenza like illness [Unknown]
  - Weight increased [Not Recovered/Not Resolved]
  - Oedema peripheral [Not Recovered/Not Resolved]
  - Obstruction [Unknown]
  - Pelvic inflammatory disease [Not Recovered/Not Resolved]
  - Headache [Not Recovered/Not Resolved]

NARRATIVE: CASE EVENT DATE: 20191030
